FAERS Safety Report 5502582-5 (Version None)
Quarter: 2007Q4

REPORT INFORMATION
  Report Type: 
  Country: None (occurrence: None)
  Receive Date: 20071031
  Receipt Date: 20071024
  Transmission Date: 20080405
  Serious: Yes (Hospitalization, Other)
  Sender: FDA-Public Use
  Company Number: PHFR2007GB03139

PATIENT
  Age: 70 Year
  Sex: Female

DRUGS (2)
  1. GLEEVEC [Suspect]
     Indication: GASTROINTESTINAL STROMAL TUMOUR
     Dosage: 400 MG/DAY
     Route: 065
  2. GLEEVEC [Suspect]
     Dosage: 200 MG/DAY
     Route: 065

REACTIONS (5)
  - COAGULOPATHY [None]
  - DISSEMINATED INTRAVASCULAR COAGULATION [None]
  - PLATELET COUNT DECREASED [None]
  - PNEUMONIA [None]
  - TONGUE HAEMORRHAGE [None]
